FAERS Safety Report 9661515 (Version 2)
Quarter: 2013Q4

REPORT INFORMATION
  Report Type: Spontaneous
  Country: US (occurrence: US)
  Receive Date: 20131031
  Receipt Date: 20131114
  Transmission Date: 20140711
  Serious: Yes (Hospitalization, Other)
  Sender: FDA-Public Use
  Company Number: US-GILEAD-2013-0086677

PATIENT
  Sex: Female

DRUGS (19)
  1. LETAIRIS [Suspect]
     Indication: PULMONARY HYPERTENSION
     Dosage: 5 MG, QD
     Dates: start: 20120126
  2. LETAIRIS [Suspect]
     Indication: SCLERODERMA
  3. CEPHALEXIN                         /00145501/ [Concomitant]
  4. CLINDAMYCIN [Concomitant]
  5. XARELTO [Concomitant]
  6. LEVOTHYROXINE [Concomitant]
  7. ASPIRIN [Concomitant]
  8. ISOSORBIDE MONONITRATE [Concomitant]
  9. LIPITOR [Concomitant]
  10. CODEINE [Concomitant]
  11. ACIDOPHILUS [Concomitant]
  12. VITAMIN E                          /00110501/ [Concomitant]
  13. FISH OIL [Concomitant]
  14. NIACIN [Concomitant]
  15. ZOLPIDEM [Concomitant]
  16. PROTONIX [Concomitant]
  17. PLAVIX [Concomitant]
  18. URSO FORTE [Concomitant]
  19. LYRICA [Concomitant]

REACTIONS (3)
  - Amputation [Unknown]
  - Infection [Not Recovered/Not Resolved]
  - Asthenia [Not Recovered/Not Resolved]
